FAERS Safety Report 16095693 (Version 2)
Quarter: 2019Q1

REPORT INFORMATION
  Report Type: Spontaneous
  Country: AU (occurrence: AU)
  Receive Date: 20190320
  Receipt Date: 20190328
  Transmission Date: 20190418
  Serious: Yes (Other)
  Sender: FDA-Public Use
  Company Number: AU-SA-2019SA073985

PATIENT
  Age: 76 Year
  Sex: Male

DRUGS (3)
  1. RIFAMPICIN [Suspect]
     Active Substance: RIFAMPIN
     Indication: MYCOBACTERIUM ULCERANS INFECTION
     Dosage: UNK
  2. CIPROFLOXACIN. [Suspect]
     Active Substance: CIPROFLOXACIN
     Indication: MYCOBACTERIUM ULCERANS INFECTION
  3. FUSIDIC ACID [Suspect]
     Active Substance: FUSIDIC ACID
     Indication: MYCOBACTERIUM ULCERANS INFECTION

REACTIONS (5)
  - Immune reconstitution inflammatory syndrome [Recovered/Resolved]
  - Paradoxical drug reaction [Recovered/Resolved]
  - Fat necrosis [Recovered/Resolved]
  - Skin graft failure [Recovered/Resolved]
  - Skin necrosis [Recovered/Resolved]
